FAERS Safety Report 11810991 (Version 1)
Quarter: 2015Q4

REPORT INFORMATION
  Report Type: Spontaneous
  Country: US (occurrence: None)
  Receive Date: 20151207
  Receipt Date: 20151207
  Transmission Date: 20160305
  Serious: Yes (Hospitalization)
  Sender: FDA-Public Use
  Company Number: None

PATIENT
  Age: 68 Year
  Sex: Female
  Weight: 55.45 kg

DRUGS (2)
  1. CARBOPLATIN. [Suspect]
     Active Substance: CARBOPLATIN
     Dates: end: 20150728
  2. TAXOL [Suspect]
     Active Substance: PACLITAXEL
     Dates: end: 20150728

REACTIONS (4)
  - Abdominal pain [None]
  - Pneumoperitoneum [None]
  - Abscess [None]
  - Diverticular perforation [None]

NARRATIVE: CASE EVENT DATE: 20150731
